FAERS Safety Report 8275786 (Version 2)
Quarter: 2013Q2

REPORT INFORMATION
  Report Type: Spontaneous
  Country: AU (occurrence: AU)
  Receive Date: 20111206
  Receipt Date: 20130513
  Transmission Date: 20140414
  Serious: Yes (Other)
  Sender: FDA-Public Use
  Company Number: AU-BIOGENIDEC-2011BI033651

PATIENT
  Age: 41 Year
  Sex: Female

DRUGS (3)
  1. AVONEX [Suspect]
     Indication: MULTIPLE SCLEROSIS
     Route: 030
     Dates: start: 201109, end: 201109
  2. GABAPENTIN [Concomitant]
  3. ANTI-CHOLESTEROL MEDICATION (NOS) [Concomitant]

REACTIONS (3)
  - Abortion spontaneous [Unknown]
  - Hypercoagulation [Unknown]
  - Thrombosis [Unknown]
